FAERS Safety Report 4613675-9 (Version None)
Quarter: 2005Q1

REPORT INFORMATION
  Report Type: 
  Country: None (occurrence: None)
  Receive Date: 20050321
  Receipt Date: 20050309
  Transmission Date: 20050727
  Serious: Yes (Hospitalization, Other)
  Sender: FDA-Public Use
  Company Number: 200511923US

PATIENT
  Sex: Female

DRUGS (11)
  1. LOVENOX [Suspect]
     Indication: THROMBOSIS
     Dosage: DOSE: UNK
     Dates: start: 20050222, end: 20050222
  2. TESTOSTERONE [Concomitant]
     Dosage: DOSE: UNK
  3. METFORMIN HCL [Concomitant]
     Dosage: DOSE: UNK
  4. LITHIUM [Concomitant]
     Dosage: DOSE: UNK
  5. WELLBUTRIN [Concomitant]
     Dosage: DOSE: UNK
  6. TRAZODONE HCL [Concomitant]
     Dosage: DOSE: UNK
  7. CLONOPIN [Concomitant]
     Dosage: DOSE: UNK
  8. LAMICTAL [Concomitant]
     Dosage: DOSE: UNK
  9. PERCOCET [Concomitant]
     Dosage: DOSE: UNK
  10. ASPIRIN [Concomitant]
     Dosage: DOSE: UNK
  11. IBUPROFEN [Concomitant]
     Dosage: DOSE: UNK

REACTIONS (8)
  - ANXIETY [None]
  - ARTHRALGIA [None]
  - INJECTION SITE HAEMORRHAGE [None]
  - INJECTION SITE MASS [None]
  - INJECTION SITE THROMBOSIS [None]
  - POST PROCEDURAL PAIN [None]
  - PRURITUS [None]
  - SKIN BURNING SENSATION [None]
